FAERS Safety Report 10435642 (Version 1)
Quarter: 2014Q3

REPORT INFORMATION
  Report Type: Spontaneous
  Country: US (occurrence: None)
  Receive Date: 20140904
  Receipt Date: 20140904
  Transmission Date: 20150326
  Serious: No
  Sender: FDA-Public Use
  Company Number: None

PATIENT
  Age: 67 Year
  Sex: Male

DRUGS (1)
  1. XTANDI [Suspect]
     Active Substance: ENZALUTAMIDE
     Indication: PROSTATE CANCER
     Dosage: 4 CAPSULES QD ORAL
     Route: 048

REACTIONS (5)
  - Vomiting [None]
  - Asthenia [None]
  - Activities of daily living impaired [None]
  - Decreased appetite [None]
  - Hyperhidrosis [None]

NARRATIVE: CASE EVENT DATE: 20140712
